FAERS Safety Report 12521597 (Version 2)
Quarter: 2016Q3

REPORT INFORMATION
  Report Type: Spontaneous
  Country: AR (occurrence: AR)
  Receive Date: 20160701
  Receipt Date: 20160805
  Transmission Date: 20161109
  Serious: Yes (Hospitalization, Other)
  Sender: FDA-Public Use
  Company Number: US-ASTRAZENECA-2016SE71736

PATIENT
  Age: 0 Year
  Weight: 3.5 kg

DRUGS (1)
  1. SYNAGIS [Suspect]
     Active Substance: PALIVIZUMAB
     Indication: PRODUCT USED FOR UNKNOWN INDICATION
     Route: 030
     Dates: start: 20160521, end: 20160617

REACTIONS (4)
  - Apnoea [Recovering/Resolving]
  - Pallor [Recovering/Resolving]
  - Hypotonia [Recovering/Resolving]
  - Catarrh [Unknown]

NARRATIVE: CASE EVENT DATE: 2016
